FAERS Safety Report 5826118-4 (Version None)
Quarter: 2008Q2

REPORT INFORMATION
  Report Type: 
  Country: None (occurrence: None)
  Receive Date: 20080601
  Receipt Date: 20080214
  Transmission Date: 20081010
  Serious: No
  Sender: FDA-Public Use
  Company Number: US200802003602

PATIENT
  Age: 74 Year
  Sex: Female
  Weight: 82.1 kg

DRUGS (10)
  1. BYETTA [Suspect]
     Indication: TYPE 2 DIABETES MELLITUS
     Dosage: 5 UG, 2/D, SUBCUTANEOUS
     Route: 058
     Dates: start: 20080212, end: 20080214
  2. GLIMEPIRIDE [Concomitant]
  3. METFORMIN HCL [Concomitant]
  4. LOVASTATIN [Concomitant]
  5. FUROSEMIDE (FUROSEMIDE) [Concomitant]
  6. LEVOTHYROXINE SODIUM [Concomitant]
  7. ESTROPIPATE [Concomitant]
  8. ACIPHEX [Concomitant]
  9. LOMOTIL [Concomitant]
  10. SYMBICORT [Concomitant]

REACTIONS (1)
  - MUSCLE SPASMS [None]
